FAERS Safety Report 8821850 (Version 1)
Quarter: 2012Q4

REPORT INFORMATION
  Report Type: 
  Country: GR (occurrence: GR)
  Receive Date: 20121002
  Receipt Date: 20121002
  Transmission Date: 20130627
  Serious: Yes (Hospitalization)
  Sender: FDA-Public Use
  Company Number: GR-MYLANLABS-2012S1019543

PATIENT
  Age: 31 Year
  Sex: Female

DRUGS (2)
  1. THIAMAZOLE [Suspect]
     Route: 065
  2. PROPRANOLOL [Concomitant]
     Route: 065

REACTIONS (1)
  - Acute generalised exanthematous pustulosis [Recovered/Resolved]
